FAERS Safety Report 13090167 (Version 1)
Quarter: 2017Q1

REPORT INFORMATION
  Report Type: Spontaneous
  Country: US (occurrence: US)
  Receive Date: 20170105
  Receipt Date: 20170105
  Transmission Date: 20170428
  Serious: Yes (Other)
  Sender: FDA-Public Use
  Company Number: US-MALLINCKRODT-T201606889

PATIENT
  Sex: Male

DRUGS (1)
  1. SODIUM IODIDE (123 I) [Suspect]
     Active Substance: SODIUM IODIDE I-123
     Indication: PRODUCT USED FOR UNKNOWN INDICATION
     Dosage: 299 ?CI, SINGLE
     Route: 065
     Dates: start: 201609, end: 201609

REACTIONS (1)
  - Cardiac arrest [Unknown]
